FAERS Safety Report 7330998-3 (Version None)
Quarter: 2011Q1

REPORT INFORMATION
  Report Type: 
  Country: None (occurrence: None)
  Receive Date: 20110304
  Receipt Date: 20110221
  Transmission Date: 20110831
  Serious: Yes (Hospitalization)
  Sender: FDA-Public Use
  Company Number: PL-JNJFOC-20110200388

PATIENT
  Sex: Female
  Weight: 74 kg

DRUGS (18)
  1. GOLIMUMAB [Suspect]
     Route: 058
  2. METHOTREXATE [Concomitant]
     Route: 048
  3. GOLIMUMAB [Suspect]
     Indication: RHEUMATOID ARTHRITIS
     Route: 058
  4. LACIDIPINE [Concomitant]
     Route: 048
  5. ALLOPURINOL [Concomitant]
     Route: 048
  6. METHOTREXATE [Suspect]
     Indication: RHEUMATOID ARTHRITIS
     Route: 048
  7. LACTOBACILLUS ACIDOPHILUS [Concomitant]
     Route: 048
  8. PWE (COMPOUND ELECTROLYTE SOLUTION) [Concomitant]
     Route: 042
  9. FUROSEMIDE [Concomitant]
     Route: 042
  10. BISOPROLOL FUMARATE [Concomitant]
     Route: 048
  11. DICLOFENAC [Concomitant]
     Route: 048
  12. PANTOPRAZOLE [Concomitant]
     Route: 048
  13. PLACEBO [Suspect]
     Indication: RHEUMATOID ARTHRITIS
     Route: 030
  14. METHOTREXATE [Concomitant]
     Route: 048
  15. TRIMEBUTINE [Concomitant]
     Route: 048
  16. ENOXAPARIN SODIUM [Concomitant]
     Route: 058
  17. SODIUM CHLORIDE INFUSION [Concomitant]
     Route: 042
  18. FUROSEMIDE [Concomitant]
     Route: 042

REACTIONS (1)
  - INTERSTITIAL LUNG DISEASE [None]
